FAERS Safety Report 10169539 (Version 2)
Quarter: 2014Q2

REPORT INFORMATION
  Report Type: Spontaneous
  Country: GB (occurrence: GB)
  Receive Date: 20140513
  Receipt Date: 20140616
  Transmission Date: 20141212
  Serious: Yes (Death)
  Sender: FDA-Public Use
  Company Number: GB-B.I. PHARMACEUTICALS,INC./RIDGEFIELD-2014-BI-20971UK

PATIENT
  Age: 72 Year
  Sex: Male
  Weight: 105.9 kg

DRUGS (8)
  1. PRADAXA [Suspect]
     Indication: CEREBROVASCULAR ACCIDENT PROPHYLAXIS
     Dosage: 220 MG
     Route: 065
     Dates: start: 20121211
  2. PRADAXA [Suspect]
     Indication: ATRIAL FIBRILLATION
  3. OMEPRAZOLE [Concomitant]
     Dosage: 20 MG
     Route: 065
  4. PERINDOPRIL [Concomitant]
     Dosage: 2 MG
     Route: 065
  5. DIGOXIN [Concomitant]
     Route: 065
  6. ISMN [Concomitant]
     Dosage: 20 MG
     Route: 065
  7. PARACETAMOL [Concomitant]
     Dosage: 4 G
     Route: 065
  8. BUNETAMIDE [Concomitant]
     Dosage: 1 MG
     Route: 065

REACTIONS (4)
  - Haemorrhage intracranial [Fatal]
  - Head injury [Fatal]
  - Fall [Unknown]
  - Fall [Unknown]
